FAERS Safety Report 11635869 (Version 4)
Quarter: 2016Q4

REPORT INFORMATION
  Report Type: Spontaneous
  Country: DE (occurrence: DE)
  Receive Date: 20151016
  Receipt Date: 20161114
  Transmission Date: 20170206
  Serious: Yes (Death, Hospitalization, Other)
  Sender: FDA-Public Use
  Company Number: DE-AMGEN-DEUSP2015106523

PATIENT
  Age: 85 Year
  Sex: Female

DRUGS (3)
  1. XGEVA [Suspect]
     Active Substance: DENOSUMAB
     Indication: BREAST CANCER
  2. XGEVA [Suspect]
     Active Substance: DENOSUMAB
     Indication: METASTASES TO BONE
     Dosage: UNK
     Route: 065
  3. CALCIUM [Concomitant]
     Active Substance: CALCIUM
     Dosage: UNK

REACTIONS (6)
  - Cholecystectomy [Unknown]
  - Clostridium difficile infection [Recovered/Resolved]
  - Gastrointestinal infection [Unknown]
  - Metastases to pelvis [Recovering/Resolving]
  - Metastases to spine [Recovering/Resolving]
  - Hypocalcaemia [Fatal]

NARRATIVE: CASE EVENT DATE: 2015
